FAERS Safety Report 14308310 (Version 4)
Quarter: 2019Q3

REPORT INFORMATION
  Report Type: Report from Study
  Country: CA (occurrence: CA)
  Receive Date: 20171220
  Receipt Date: 20190830
  Transmission Date: 20191004
  Serious: Yes (Other)
  Sender: FDA-Public Use
  Company Number: CA-BRISTOL-MYERS SQUIBB COMPANY-BMS-2017-083846

PATIENT
  Age: 72 Year
  Sex: Female
  Weight: 65 kg

DRUGS (1)
  1. ABATACEPT [Suspect]
     Active Substance: ABATACEPT
     Indication: RHEUMATOID ARTHRITIS
     Dosage: 500 MG, Q4WK
     Route: 042
     Dates: start: 20160115

REACTIONS (6)
  - Fall [Recovering/Resolving]
  - Arthropathy [Unknown]
  - Contusion [Unknown]
  - Arthralgia [Unknown]
  - Underdose [Unknown]
  - Tooth disorder [Unknown]

NARRATIVE: CASE EVENT DATE: 20170820
